FAERS Safety Report 5345944-1 (Version None)
Quarter: 2007Q2

REPORT INFORMATION
  Report Type: 
  Country: None (occurrence: None)
  Receive Date: 20070605
  Receipt Date: 20070601
  Transmission Date: 20071010
  Serious: Yes (Other)
  Sender: FDA-Public Use
  Company Number: B0473425A

PATIENT
  Age: 37 Year
  Sex: Male

DRUGS (15)
  1. EPIVIR [Suspect]
     Indication: HIV INFECTION
     Dosage: 300MG PER DAY
     Route: 048
     Dates: start: 20051012
  2. ZIAGEN [Suspect]
     Indication: HIV INFECTION
     Dosage: 600MG PER DAY
     Route: 048
     Dates: start: 20011022, end: 20050608
  3. RETROVIR [Suspect]
     Indication: HIV INFECTION
     Route: 048
     Dates: start: 20050613, end: 20051110
  4. LEXIVA [Suspect]
     Indication: HIV INFECTION
     Dosage: 700MG TWICE PER DAY
     Route: 048
     Dates: start: 20050216, end: 20050608
  5. NORVIR [Suspect]
     Indication: HIV INFECTION
     Dosage: 200MG PER DAY
     Route: 048
     Dates: start: 20050216, end: 20050608
  6. VIRACEPT [Suspect]
     Indication: HIV INFECTION
     Dosage: 1000MG TWICE PER DAY
     Route: 048
     Dates: start: 20051012, end: 20051110
  7. VIDEX EC [Concomitant]
     Indication: HIV INFECTION
     Dosage: 250MG PER DAY
     Route: 048
     Dates: start: 20050613, end: 20050827
  8. ZERIT [Concomitant]
     Indication: HIV INFECTION
     Dosage: 60MG PER DAY
     Route: 048
     Dates: start: 20051111
  9. STOCRIN [Concomitant]
     Indication: HIV INFECTION
     Dosage: 400MG PER DAY
     Route: 048
     Dates: start: 20050613, end: 20050829
  10. REYATAZ [Concomitant]
     Indication: HIV INFECTION
     Dosage: 400MG PER DAY
     Route: 048
     Dates: start: 20051111
  11. DIFLUCAN [Concomitant]
     Indication: ORAL CANDIDIASIS
     Dosage: 100MG PER DAY
     Route: 065
     Dates: start: 20050401, end: 20050406
  12. LOXONIN [Concomitant]
     Indication: PAIN IN EXTREMITY
     Dosage: 60MG PER DAY
     Route: 048
     Dates: start: 20050401
  13. URINORM [Concomitant]
     Dosage: 50MG PER DAY
     Route: 048
     Dates: start: 20050401, end: 20051225
  14. FUROSEMIDE [Concomitant]
     Indication: NEPHROTIC SYNDROME
     Dosage: 20MG PER DAY
     Route: 065
     Dates: start: 20050401, end: 20060201
  15. ALDACTONE [Concomitant]
     Indication: NEPHROTIC SYNDROME
     Dosage: 25MG PER DAY
     Route: 048
     Dates: start: 20050401, end: 20060207

REACTIONS (1)
  - ANAEMIA [None]
